FAERS Safety Report 5349770-9 (Version None)
Quarter: 2007Q2

REPORT INFORMATION
  Report Type: 
  Country: None (occurrence: None)
  Receive Date: 20070607
  Receipt Date: 20070605
  Transmission Date: 20071010
  Serious: Yes (Hospitalization, Other)
  Sender: FDA-Public Use
  Company Number: FR-ASTRAZENECA-2007CG00363

PATIENT
  Age: 66 Year
  Sex: Female
  Weight: 65 kg

DRUGS (2)
  1. ARIMIDEX [Suspect]
     Indication: BREAST CANCER FEMALE
     Route: 048
     Dates: start: 20061114, end: 20061121
  2. FEMARA [Concomitant]
     Indication: BREAST CANCER FEMALE
     Route: 048
     Dates: start: 20070111, end: 20070122

REACTIONS (2)
  - ARTHRALGIA [None]
  - OSTEONECROSIS [None]
